FAERS Safety Report 9245394 (Version 1)
Quarter: 2013Q2

REPORT INFORMATION
  Report Type: Spontaneous
  Country: GB (occurrence: GB)
  Receive Date: 20130422
  Receipt Date: 20130422
  Transmission Date: 20140414
  Serious: Yes (Other)
  Sender: FDA-Public Use
  Company Number: GB-PFIZER INC-2013121681

PATIENT
  Sex: Male

DRUGS (1)
  1. LYRICA [Suspect]
     Indication: EPILEPSY
     Dosage: UNK

REACTIONS (4)
  - Convulsion [Not Recovered/Not Resolved]
  - Head banging [Not Recovered/Not Resolved]
  - Therapeutic response delayed [Not Recovered/Not Resolved]
  - Discomfort [Not Recovered/Not Resolved]
